FAERS Safety Report 9203854 (Version 1)
Quarter: 2013Q2

REPORT INFORMATION
  Report Type: Spontaneous
  Country: US (occurrence: US)
  Receive Date: 20130402
  Receipt Date: 20130402
  Transmission Date: 20140414
  Serious: No
  Sender: FDA-Public Use
  Company Number: US-009507513-1303USA014375

PATIENT
  Sex: Male

DRUGS (2)
  1. EMEND [Suspect]
     Dosage: 150 MG, UNK
     Route: 042
     Dates: start: 20130326, end: 20130326
  2. EMEND [Suspect]
     Dosage: 150 MG, UNK
     Route: 042
     Dates: start: 2013

REACTIONS (3)
  - Extravasation [Recovered/Resolved]
  - Injection site vesicles [Recovered/Resolved]
  - Injection site pain [Recovered/Resolved]
